FAERS Safety Report 5167849-1 (Version None)
Quarter: 2006Q4

REPORT INFORMATION
  Report Type: 
  Country: None (occurrence: None)
  Receive Date: 20061208
  Receipt Date: 20060412
  Transmission Date: 20070319
  Serious: Yes (Other)
  Sender: FDA-Public Use
  Company Number: PHBS2006NZ05673

PATIENT
  Age: 45 Year
  Sex: Female

DRUGS (1)
  1. CLOZARIL [Suspect]
     Indication: SCHIZOPHRENIA
     Dosage: 500 MG/D
     Route: 048
     Dates: start: 20060804, end: 20061001

REACTIONS (2)
  - NEOPLASM MALIGNANT [None]
  - NEUTROPHIL COUNT DECREASED [None]
